FAERS Safety Report 8268610-1 (Version None)
Quarter: 2012Q2

REPORT INFORMATION
  Report Type: 
  Country: None (occurrence: None)
  Receive Date: 20120409
  Receipt Date: 20120329
  Transmission Date: 20120825
  Serious: Yes (Life-Threatening, Hospitalization)
  Sender: FDA-Public Use
  Company Number: DK-TEVA-330510ISR

PATIENT
  Sex: Male

DRUGS (11)
  1. DIGOXIN [Concomitant]
     Indication: ATRIAL FIBRILLATION
  2. SIMVASTATIN [Concomitant]
     Indication: HYPERCHOLESTEROLAEMIA
  3. ASPIRIN [Concomitant]
     Indication: THROMBOSIS PROPHYLAXIS
  4. WARFARIN SODIUM [Concomitant]
  5. CARVEDILOL [Concomitant]
     Indication: CARDIAC FAILURE
  6. SPIRONOLACTONE [Concomitant]
     Indication: CARDIAC FAILURE
  7. METHOTREXATE [Suspect]
     Indication: PSORIASIS
     Dosage: 15 MILLIGRAM;
     Route: 048
     Dates: end: 20120315
  8. POTASSIUM CHLORIDE [Concomitant]
     Indication: HYPOKALAEMIA
  9. ZOLPIDEM TARTRATE [Concomitant]
  10. FUROSEMIDE [Concomitant]
     Indication: CARDIAC FAILURE
  11. TRANDOLAPRIL [Concomitant]
     Indication: HYPERTENSION

REACTIONS (7)
  - HAEMOPTYSIS [None]
  - HAEMORRHAGE [None]
  - RESPIRATORY TRACT INFECTION [None]
  - BLOOD PRESSURE DECREASED [None]
  - PANCYTOPENIA [None]
  - SKIN EROSION [None]
  - GENERAL PHYSICAL HEALTH DETERIORATION [None]
